FAERS Safety Report 12783041 (Version 1)
Quarter: 2016Q3

REPORT INFORMATION
  Report Type: Spontaneous
  Country: US (occurrence: US)
  Receive Date: 20160927
  Receipt Date: 20160927
  Transmission Date: 20161109
  Serious: No
  Sender: FDA-Public Use
  Company Number: US-PFIZER INC-2016449215

PATIENT
  Age: 79 Year
  Sex: Female
  Weight: 83.91 kg

DRUGS (2)
  1. ANASTROZOLE. [Concomitant]
     Active Substance: ANASTROZOLE
     Indication: HORMONE LEVEL ABNORMAL
     Dosage: 1 MG, 1X/DAY
     Dates: start: 201605
  2. LYRICA [Suspect]
     Active Substance: PREGABALIN
     Indication: NEUROPATHY PERIPHERAL
     Dosage: 1 DF (CAPSULSE), 3X/DAY
     Route: 048

REACTIONS (7)
  - Memory impairment [Unknown]
  - Burning sensation [Unknown]
  - Hypoaesthesia [Unknown]
  - Glucose tolerance impaired [Unknown]
  - Joint swelling [Unknown]
  - Peripheral swelling [Unknown]
  - Gout [Unknown]
